FAERS Safety Report 9157782 (Version 1)
Quarter: 2013Q1

REPORT INFORMATION
  Report Type: Spontaneous
  Country: DK (occurrence: None)
  Receive Date: 20130213
  Receipt Date: 20130213
  Transmission Date: 20140127
  Serious: Yes (Other)
  Sender: FDA-Public Use
  Company Number: 2013MA001080

PATIENT
  Age: 27 Year
  Sex: Female

DRUGS (6)
  1. BISOPROLOL FUMARATE AND HYDROCHLOROTHIAZIDE TABLETS, 10 MG/6,25 MG (PUREPAC) (GALENIC/BISOPROLOL/HYDROCHLOROTHIAZIDE/) [Suspect]
     Indication: PRODUCT USED FOR UNKNOWN INDICATION
     Dosage: 1.25 MG; QD: PO
     Route: 048
     Dates: start: 20121112, end: 20121112
  2. CITALOPRAM HYDROBROMIDE [Suspect]
     Dosage: 20 MG; QD; PO
     Route: 048
     Dates: start: 20111113
  3. CLOZAPINE [Suspect]
     Dosage: 2 DF; QD; PO
     Route: 048
     Dates: start: 20111113
  4. FLURAZEPAM [Suspect]
     Dosage: 2 DF: QD; PO
     Route: 048
     Dates: start: 20111113
  5. FLUPHENAZINE [Suspect]
     Dosage: 25 MG; ;IM
     Route: 030
     Dates: start: 20111113
  6. DELORAZEPAM [Suspect]
     Dosage: 15 GTT; QD; PO
     Route: 048
     Dates: start: 20111113

REACTIONS (1)
  - Presyncope [None]
